FAERS Safety Report 17219056 (Version 1)
Quarter: 2019Q4

REPORT INFORMATION
  Report Type: Spontaneous
  Country: FR (occurrence: FR)
  Receive Date: 20191231
  Receipt Date: 20191231
  Transmission Date: 20200122
  Serious: Yes (Other)
  Sender: FDA-Public Use
  Company Number: FR-JNJFOC-20191245341

PATIENT
  Age: 74 Year
  Sex: Female
  Weight: 60 kg

DRUGS (5)
  1. REMICADE [Suspect]
     Active Substance: INFLIXIMAB
     Indication: PYODERMA GANGRENOSUM
     Route: 042
     Dates: start: 201905
  2. MALOCIDE                           /00112501/ [Concomitant]
     Active Substance: PYRIMETHAMINE
     Route: 048
  3. ZITHROMAX [Concomitant]
     Active Substance: AZITHROMYCIN DIHYDRATE
     Route: 048
  4. CORTANCYL [Suspect]
     Active Substance: PREDNISONE
     Indication: PYODERMA GANGRENOSUM
     Route: 048
     Dates: start: 201811
  5. LEDERFOLINE [Concomitant]
     Active Substance: LEUCOVORIN CALCIUM
     Route: 048

REACTIONS (3)
  - Eye infection toxoplasmal [Not Recovered/Not Resolved]
  - Product use in unapproved indication [Unknown]
  - Off label use [Unknown]

NARRATIVE: CASE EVENT DATE: 201905
